FAERS Safety Report 6562634-8 (Version None)
Quarter: 2010Q1

REPORT INFORMATION
  Report Type: 
  Country: None (occurrence: None)
  Receive Date: 20100130
  Receipt Date: 20091116
  Transmission Date: 20100710
  Serious: No
  Sender: FDA-Public Use
  Company Number: US-ABBOTT-09P-163-0609528-00

PATIENT
  Sex: Female

DRUGS (6)
  1. HUMIRA [Suspect]
     Indication: PSORIASIS
     Dates: start: 20090201, end: 20091028
  2. UNKNOWN [Concomitant]
     Indication: BLOOD CHOLESTEROL INCREASED
  3. ASPIRIN [Concomitant]
     Indication: DRUG USE FOR UNKNOWN INDICATION
  4. IBUPROFEN [Concomitant]
     Indication: DRUG USE FOR UNKNOWN INDICATION
  5. SERTRALINE HYDROCHLORIDE [Concomitant]
     Indication: DEPRESSION
  6. GLUCOSAMINE [Concomitant]
     Indication: DRUG USE FOR UNKNOWN INDICATION

REACTIONS (1)
  - LUPUS-LIKE SYNDROME [None]
